FAERS Safety Report 5095402-7 (Version None)
Quarter: 2006Q3

REPORT INFORMATION
  Report Type: 
  Country: None (occurrence: None)
  Receive Date: 20060901
  Receipt Date: 20060828
  Transmission Date: 20061208
  Serious: Yes (Hospitalization)
  Sender: FDA-Public Use
  Company Number: US-BRISTOL-MYERS SQUIBB COMPANY-13490883

PATIENT
  Age: 55 Year
  Sex: Female

DRUGS (10)
  1. CARBOPLATIN [Suspect]
     Indication: NON-SMALL CELL LUNG CANCER
     Route: 042
     Dates: start: 20060822, end: 20060822
  2. TAXOTERE [Suspect]
     Indication: NON-SMALL CELL LUNG CANCER
     Route: 042
     Dates: start: 20060822, end: 20060822
  3. PROTONIX [Concomitant]
  4. KLONOPIN [Concomitant]
  5. SULCRATE [Concomitant]
  6. COUMADIN [Concomitant]
  7. LORAZEPAM [Concomitant]
  8. VICODIN [Concomitant]
  9. DECADRON [Concomitant]
  10. IMODIUM [Concomitant]

REACTIONS (2)
  - DIARRHOEA [None]
  - PNEUMONITIS [None]
